FAERS Safety Report 21251219 (Version 2)
Quarter: 2022Q4

REPORT INFORMATION
  Report Type: Other
  Country: PT (occurrence: PT)
  Receive Date: 20220825
  Receipt Date: 20221022
  Transmission Date: 20230112
  Serious: Yes (Disabling)
  Sender: FDA-Public Use
  Company Number: PT-CELLTRION INC.-2022PT013174

PATIENT

DRUGS (1)
  1. INFLIXIMAB [Suspect]
     Active Substance: INFLIXIMAB
     Indication: Crohn^s disease
     Dosage: UNK
     Dates: end: 202206

REACTIONS (2)
  - Ear infection [Unknown]
  - Eczema [Unknown]

NARRATIVE: CASE EVENT DATE: 20200921
